FAERS Safety Report 4399472-0 (Version None)
Quarter: 2004Q3

REPORT INFORMATION
  Report Type: 
  Country: None (occurrence: None)
  Receive Date: 20040716
  Receipt Date: 20040215
  Transmission Date: 20050211
  Serious: Yes (Life-Threatening)
  Sender: FDA-Public Use
  Company Number: PHRM2004DZ00968

PATIENT
  Age: 60 Year
  Sex: Female
  Weight: 50 kg

DRUGS (4)
  1. FORADIL [Suspect]
     Indication: ASTHMA
     Dosage: 12 UG, ONCE/SINGLE
     Dates: start: 20040101
  2. SERETIDE [Suspect]
     Indication: ASTHMA
     Dosage: UNK, UNK
  3. BRICANYL [Concomitant]
     Route: 048
  4. VENTOLIN [Concomitant]

REACTIONS (1)
  - SUFFOCATION FEELING [None]
